APPROVED DRUG PRODUCT: CLONIDINE HYDROCHLORIDE
Active Ingredient: CLONIDINE HYDROCHLORIDE
Strength: 0.2MG
Dosage Form/Route: TABLET;ORAL
Application: A091368 | Product #002 | TE Code: AB
Applicant: ALEMBIC PHARMACEUTICALS LTD
Approved: Dec 6, 2011 | RLD: No | RS: No | Type: RX